FAERS Safety Report 10251920 (Version 1)
Quarter: 2014Q2

REPORT INFORMATION
  Report Type: Report from Study
  Country: US (occurrence: None)
  Receive Date: 20140619
  Receipt Date: 20140619
  Transmission Date: 20141212
  Serious: Yes (Death, Other)
  Sender: FDA-Public Use
  Company Number: 2014-19764

PATIENT
  Age: 55 Year
  Sex: 0

DRUGS (1)
  1. EYLEA (ALFIBERCEPT) INJECTION [Suspect]
     Indication: PRODUCT USED FOR UNKNOWN INDICATION
     Dates: start: 20121113

REACTIONS (1)
  - Death [None]
